FAERS Safety Report 8817021 (Version 1)
Quarter: 2012Q4

REPORT INFORMATION
  Report Type: Spontaneous
  Country: JP (occurrence: None)
  Receive Date: 20121002
  Receipt Date: 20121002
  Transmission Date: 20130627
  Serious: Yes (Other)
  Sender: FDA-Public Use
  Company Number: 2010JP001601

PATIENT
  Sex: Female

DRUGS (3)
  1. SOLIFENACIN [Suspect]
     Route: 048
  2. BLOPRESS (CANDESARTAN CILEXETIL) FORMULATION UNKNOWN [Concomitant]
  3. MEVALOTIN (PRAVASTATIN SODIUM) FORMULATION UNKNOWN [Concomitant]

REACTIONS (1)
  - Intraocular pressure increased [None]
